FAERS Safety Report 5990988-X (Version None)
Quarter: 2008Q4

REPORT INFORMATION
  Report Type: 
  Country: None (occurrence: None)
  Receive Date: 20081202
  Receipt Date: 20080414
  Transmission Date: 20090506
  Serious: Yes (Disabling)
  Sender: FDA-Public Use
  Company Number: WAES 0705USA01417

PATIENT
  Age: 74 Year
  Sex: Female
  Weight: 54.4316 kg

DRUGS (4)
  1. FOSAMAX [Suspect]
     Indication: OSTEOPOROSIS
     Dosage: 70 MG/PO; 10 MG/DAILY/PO
     Route: 048
     Dates: end: 20031222
  2. FOSAMAX [Suspect]
     Indication: OSTEOPOROSIS
     Dosage: 70 MG/PO; 10 MG/DAILY/PO
     Route: 048
     Dates: start: 19950101, end: 20060201
  3. .. [Concomitant]
  4. PROZAC [Concomitant]

REACTIONS (7)
  - FALL [None]
  - JAW DISORDER [None]
  - OSTEONECROSIS [None]
  - PAIN [None]
  - SPINAL FRACTURE [None]
  - TOOTH LOSS [None]
  - UPPER LIMB FRACTURE [None]
